FAERS Safety Report 7044467-1 (Version None)
Quarter: 2010Q4

REPORT INFORMATION
  Report Type: 
  Country: None (occurrence: None)
  Receive Date: 20101014
  Receipt Date: 20101004
  Transmission Date: 20110411
  Serious: Yes (Hospitalization, Other)
  Sender: FDA-Public Use
  Company Number: US-US-EMD SERONO, INC.-231393J10USA

PATIENT
  Sex: Male

DRUGS (9)
  1. REBIF [Suspect]
     Indication: MULTIPLE SCLEROSIS
     Route: 058
     Dates: start: 20090401, end: 20100208
  2. REBIF [Suspect]
     Route: 058
     Dates: start: 20100101, end: 20100723
  3. REBIF [Suspect]
     Route: 058
     Dates: start: 20100101, end: 20100816
  4. CITALOPRAM HYDROBROMIDE [Concomitant]
     Indication: BIPOLAR DISORDER
  5. GLYBURIDE [Concomitant]
     Indication: DIABETES MELLITUS
  6. DEPAKOTE [Concomitant]
     Indication: GRAND MAL CONVULSION
  7. DILANTIN [Concomitant]
     Indication: GRAND MAL CONVULSION
  8. REQUIP [Concomitant]
     Indication: RESTLESS LEGS SYNDROME
  9. DAVOCET [Concomitant]
     Indication: PAIN IN EXTREMITY

REACTIONS (8)
  - ANXIETY [None]
  - DEPRESSION [None]
  - DYSPNOEA [None]
  - HOMICIDAL IDEATION [None]
  - INSOMNIA [None]
  - RESTLESS LEGS SYNDROME [None]
  - SUICIDAL IDEATION [None]
  - WEIGHT DECREASED [None]
